FAERS Safety Report 7617283-7 (Version None)
Quarter: 2011Q3

REPORT INFORMATION
  Report Type: 
  Country: None (occurrence: None)
  Receive Date: 20110718
  Receipt Date: 20110706
  Transmission Date: 20111222
  Serious: Yes (Hospitalization, Other)
  Sender: FDA-Public Use
  Company Number: US-ELI_LILLY_AND_COMPANY-US201101003853

PATIENT
  Sex: Male

DRUGS (14)
  1. CELEBREX [Concomitant]
  2. MULTI-VITAMIN [Concomitant]
  3. STOOL SOFTENER [Concomitant]
  4. ASPIRIN [Concomitant]
  5. VITAMIN E [Concomitant]
  6. ASCORBIC ACID [Concomitant]
  7. FORTEO [Suspect]
     Dosage: 20 UG, QD
  8. ZOCOR [Concomitant]
  9. LOVAZA [Concomitant]
  10. FORTEO [Suspect]
     Indication: OSTEOPOROSIS
     Dosage: 20 UG, QD
     Route: 065
     Dates: start: 20101101
  11. MIRALAX [Concomitant]
  12. NEXIUM [Concomitant]
  13. PERCOCET [Concomitant]
  14. CALCIUM WITH VITAMIN D [Concomitant]

REACTIONS (11)
  - ANEURYSM REPAIR [None]
  - PAIN IN EXTREMITY [None]
  - FAECAL INCONTINENCE [None]
  - SOMNOLENCE [None]
  - KNEE ARTHROPLASTY [None]
  - MALAISE [None]
  - PAIN [None]
  - NAUSEA [None]
  - LIMB DEFORMITY [None]
  - INJECTION SITE HAEMATOMA [None]
  - MEDICAL DEVICE REMOVAL [None]
